FAERS Safety Report 8839859 (Version 2)
Quarter: 2013Q1

REPORT INFORMATION
  Report Type: Spontaneous
  Country: US (occurrence: US)
  Receive Date: 20121015
  Receipt Date: 20130226
  Transmission Date: 20140127
  Serious: No
  Sender: FDA-Public Use
  Company Number: US-009507513-1210USA001554

PATIENT
  Sex: Female

DRUGS (8)
  1. VICTRELIS [Suspect]
     Indication: HEPATITIS C
     Dosage: 800 MG, TID
     Route: 048
     Dates: start: 20120911
  2. PEGASYS [Suspect]
     Indication: HEPATITIS C
     Dosage: 180 MICROGRAM, QW
  3. RIBAPAK [Suspect]
     Indication: HEPATITIS C
     Dosage: 600 MG, BID
  4. FLUOXETINE HYDROCHLORIDE [Concomitant]
  5. VICODIN [Concomitant]
  6. TRAMADOL HYDROCHLORIDE [Concomitant]
  7. IBUPROFEN [Concomitant]
  8. XOPENEX [Concomitant]

REACTIONS (4)
  - Nasal congestion [Unknown]
  - Cough [Unknown]
  - Pruritus [Unknown]
  - Dry skin [Unknown]
